FAERS Safety Report 12082545 (Version 1)
Quarter: 2016Q1

REPORT INFORMATION
  Report Type: Spontaneous
  Country: US (occurrence: None)
  Receive Date: 20160212
  Receipt Date: 20160212
  Transmission Date: 20160526
  Serious: No
  Sender: FDA-Public Use
  Company Number: None

PATIENT
  Age: 72 Year
  Sex: Male

DRUGS (1)
  1. HARVONI [Suspect]
     Active Substance: LEDIPASVIR\SOFOSBUVIR
     Indication: HEPATITIS C
     Dosage: 1
     Route: 048
     Dates: start: 20151214, end: 20160211

REACTIONS (6)
  - Insomnia [None]
  - Parosmia [None]
  - Depression [None]
  - Amnesia [None]
  - Fatigue [None]
  - Dysgeusia [None]

NARRATIVE: CASE EVENT DATE: 20160211
